FAERS Safety Report 8814092 (Version 1)
Quarter: 2012Q4

REPORT INFORMATION
  Report Type: 
  Country: US (occurrence: None)
  Receive Date: 20120926
  Receipt Date: 20120926
  Transmission Date: 20130627
  Serious: Yes (Life-Threatening)
  Sender: FDA-Public Use
  Company Number: None

PATIENT
  Age: 72 Year
  Sex: Female

DRUGS (1)
  1. GLUCOPHAGE [Suspect]
     Dosage: 6 tablets
     Dates: start: 20120910, end: 20120912

REACTIONS (4)
  - Convulsion [None]
  - Blood glucose increased [None]
  - Product shape issue [None]
  - Product substitution issue [None]
